FAERS Safety Report 6167029-7 (Version None)
Quarter: 2009Q2

REPORT INFORMATION
  Report Type: 
  Country: None (occurrence: None)
  Receive Date: 20090424
  Receipt Date: 20090415
  Transmission Date: 20091009
  Serious: Yes (Hospitalization)
  Sender: FDA-Public Use
  Company Number: FR-PFIZER INC-2009198109

PATIENT

DRUGS (8)
  1. ALDACTONE [Suspect]
     Indication: HYPERTENSION
     Dosage: 25 MG, 1X/DAY
     Route: 048
     Dates: end: 20090219
  2. BI-PROFENID [Interacting]
     Indication: ARTHRITIS
     Dosage: 150 MG, 2X/DAY
     Route: 048
     Dates: start: 20090216, end: 20090217
  3. LASIX [Interacting]
     Indication: HYPERTENSION
     Dosage: 40 MG, 1X/DAY
     Route: 048
  4. COLCHIMAX [Concomitant]
     Indication: GOUT
     Dosage: UNK
     Route: 048
     Dates: start: 20090217, end: 20090226
  5. GLEEVEC [Concomitant]
     Indication: CHRONIC MYELOID LEUKAEMIA
     Dosage: 1 DF, 1X/DAY
     Route: 048
     Dates: start: 20090218, end: 20090224
  6. CORDARONE [Concomitant]
     Indication: ATRIAL FIBRILLATION
     Dosage: 200 MG, 1X/DAY
  7. SINTROM [Concomitant]
     Indication: ATRIAL FIBRILLATION
  8. PREVISCAN [Concomitant]
     Indication: ATRIAL FIBRILLATION
     Dosage: 0.5 DF, 1X/DAY

REACTIONS (2)
  - DRUG INTERACTION [None]
  - RENAL FAILURE ACUTE [None]
